FAERS Safety Report 8367370-3 (Version None)
Quarter: 2012Q2

REPORT INFORMATION
  Report Type: 
  Country: None (occurrence: None)
  Receive Date: 20120517
  Receipt Date: 20120514
  Transmission Date: 20120825
  Serious: Yes (Hospitalization, Other)
  Sender: FDA-Public Use
  Company Number: US-PFIZER INC-2012117303

PATIENT
  Sex: Female
  Weight: 86.168 kg

DRUGS (10)
  1. THYROID TAB [Suspect]
     Indication: THYROID DISORDER
     Dosage: UNK
  2. EFFEXOR [Suspect]
     Dosage: UNK
     Dates: end: 20100101
  3. ZYPREXA [Suspect]
     Indication: AFFECTIVE DISORDER
     Dosage: 5 MG, DAILY
  4. EFFEXOR [Suspect]
     Dosage: 75 MG, DAILY
  5. PRISTIQ [Suspect]
     Indication: DEPRESSION
     Dosage: UNK
     Dates: start: 20120514
  6. PROZAC [Suspect]
     Indication: DEPRESSION
     Dosage: 10 MG, DAILY
     Dates: start: 20120506
  7. EFFEXOR [Suspect]
     Indication: DEPRESSION
     Dosage: 50 MG, DAILY
  8. CLONAZEPAM [Suspect]
     Indication: ANXIETY
     Dosage: 0.5 MG ONE IN MORNING AND TWO AT NIGHT, 2X/DAY
     Dates: start: 20120503
  9. COZAAR [Suspect]
     Indication: HYPERTENSION
     Dosage: 50 MG, DAILY
     Dates: start: 20120503
  10. CLONAZEPAM [Suspect]
     Indication: PANIC ATTACK

REACTIONS (12)
  - GALLBLADDER DISORDER [None]
  - AUTOIMMUNE THYROIDITIS [None]
  - WEIGHT DECREASED [None]
  - DEPRESSION [None]
  - BACK DISORDER [None]
  - DECREASED APPETITE [None]
  - BLOOD CHOLESTEROL INCREASED [None]
  - JOINT RANGE OF MOTION DECREASED [None]
  - ALOPECIA [None]
  - BLOOD TRIGLYCERIDES INCREASED [None]
  - ABDOMINAL DISCOMFORT [None]
  - HEADACHE [None]
